FAERS Safety Report 8966447 (Version 3)
Quarter: 2013Q2

REPORT INFORMATION
  Report Type: Report from Study
  Country: JP (occurrence: JP)
  Receive Date: 20121214
  Receipt Date: 20130508
  Transmission Date: 20140414
  Serious: Yes (Death)
  Sender: FDA-Public Use
  Company Number: JP-GLAXOSMITHKLINE-B0852529A

PATIENT
  Age: 71 Year
  Sex: Male
  Weight: 62 kg

DRUGS (28)
  1. SAMTIREL [Suspect]
     Indication: ANTIFUNGAL PROPHYLAXIS
     Dosage: 750MG PER DAY
     Route: 048
     Dates: start: 20121109, end: 20121129
  2. POTELIGEO [Concomitant]
     Indication: ADULT T-CELL LYMPHOMA/LEUKAEMIA
     Route: 042
     Dates: start: 20121031, end: 20121107
  3. METGLUCO [Concomitant]
     Dosage: 250MG TWICE PER DAY
     Route: 048
     Dates: start: 20121103, end: 20121116
  4. GLIMICRON [Concomitant]
     Dosage: 40MG TWICE PER DAY
     Route: 048
     Dates: start: 20121103, end: 20121109
  5. ZYLORIC [Concomitant]
     Dosage: 100MG TWICE PER DAY
     Route: 048
     Dates: start: 20121030, end: 20121129
  6. CARNACULIN [Concomitant]
     Dosage: 1IUAX TWICE PER DAY
     Route: 048
     Dates: start: 20121012, end: 20121123
  7. BAYASPIRIN [Concomitant]
     Dosage: 100MG PER DAY
     Route: 048
     Dates: start: 20120929, end: 20121129
  8. DIOVAN [Concomitant]
     Dosage: 80MG PER DAY
     Route: 048
     Dates: start: 20120929, end: 20121123
  9. LIPITOR [Concomitant]
     Dosage: 10MG PER DAY
     Route: 048
     Dates: end: 20121116
  10. MAGMITT [Concomitant]
     Dosage: 250MG THREE TIMES PER DAY
     Route: 048
     Dates: end: 20121129
  11. GASMOTIN [Concomitant]
     Dosage: 5MG PER DAY
     Route: 048
     Dates: start: 20121120, end: 20121120
  12. SENNOSIDE [Concomitant]
     Dosage: 24MG PER DAY
     Route: 048
     Dates: start: 20121121, end: 20121129
  13. FUROSEMIDE [Concomitant]
     Dosage: 40MG PER DAY
     Route: 048
     Dates: start: 20121127, end: 20121129
  14. WARFARIN [Concomitant]
     Dosage: 4MG PER DAY
     Route: 048
     Dates: start: 20121128, end: 20121128
  15. HUMULIN R [Concomitant]
     Dosage: 14IU PER DAY
     Dates: start: 20121114, end: 20121115
  16. GRAN [Concomitant]
     Dates: start: 20121122, end: 20121129
  17. GRANISETRON [Concomitant]
     Route: 042
     Dates: start: 20121123, end: 20121123
  18. OXYCONTIN [Concomitant]
     Dosage: 15MG THREE TIMES PER DAY
     Route: 048
     Dates: start: 20121018, end: 20121129
  19. DIAMOX [Concomitant]
     Dosage: 250MG THREE TIMES PER DAY
     Route: 048
     Dates: start: 20121114, end: 20121114
  20. KAYEXALATE [Concomitant]
     Dosage: 2IUAX THREE TIMES PER DAY
     Route: 048
     Dates: start: 20121115, end: 20121129
  21. TAKEPRON [Concomitant]
     Dosage: 15MG PER DAY
     Route: 048
     Dates: start: 20121117, end: 20121129
  22. CYMERIN [Concomitant]
     Indication: ADULT T-CELL LYMPHOMA/LEUKAEMIA
     Dosage: 80MG PER DAY
     Route: 042
     Dates: start: 20121121
  23. ENDOXAN [Concomitant]
     Indication: ADULT T-CELL LYMPHOMA/LEUKAEMIA
     Route: 042
     Dates: start: 201210, end: 201210
  24. ADRIACIN [Concomitant]
     Indication: ADULT T-CELL LYMPHOMA/LEUKAEMIA
     Route: 042
     Dates: start: 201210, end: 201210
  25. ADRIACIN [Concomitant]
     Indication: ADULT T-CELL LYMPHOMA/LEUKAEMIA
     Dosage: 40MG PER DAY
     Route: 042
     Dates: start: 20121121
  26. ONCOVIN [Concomitant]
     Indication: ADULT T-CELL LYMPHOMA/LEUKAEMIA
     Route: 042
     Dates: start: 201210, end: 201210
  27. PREDONINE [Concomitant]
     Indication: ADULT T-CELL LYMPHOMA/LEUKAEMIA
     Route: 048
     Dates: start: 201210, end: 201210
  28. PREDONINE [Concomitant]
     Indication: ADULT T-CELL LYMPHOMA/LEUKAEMIA
     Route: 048
     Dates: start: 20121109

REACTIONS (1)
  - Pulmonary embolism [Fatal]
